FAERS Safety Report 5362911-2 (Version None)
Quarter: 2007Q2

REPORT INFORMATION
  Report Type: 
  Country: None (occurrence: None)
  Receive Date: 20070530
  Receipt Date: 20070328
  Transmission Date: 20071010
  Serious: No
  Sender: FDA-Public Use
  Company Number: 2007PV032576

PATIENT
  Age: 50 Year
  Sex: Female

DRUGS (3)
  1. BYETTA [Suspect]
     Indication: DRUG USE FOR UNKNOWN INDICATION
     Dosage: 5 MCG;BID;SC
     Route: 058
     Dates: start: 20070312, end: 20070328
  2. SYNTHROID [Suspect]
     Indication: HYPOTHYROIDISM
     Dosage: 37 MG; QD; PO
     Route: 048
  3. DICYCLOMINE [Suspect]
     Indication: ABDOMINAL DISCOMFORT
     Dosage: 10 MG; TID; PO
     Route: 048
     Dates: start: 20061101

REACTIONS (3)
  - DRUG INTERACTION [None]
  - INJECTION SITE URTICARIA [None]
  - URTICARIA GENERALISED [None]
